FAERS Safety Report 16532030 (Version 2)
Quarter: 2019Q3

REPORT INFORMATION
  Report Type: Spontaneous
  Country: US (occurrence: US)
  Receive Date: 20190704
  Receipt Date: 20190711
  Transmission Date: 20191004
  Serious: No
  Sender: FDA-Public Use
  Company Number: US-JNJFOC-20190702186

PATIENT
  Age: 7 Year
  Sex: Male
  Weight: 29.51 kg

DRUGS (1)
  1. CHILDRENS TYLENOL [Suspect]
     Active Substance: ACETAMINOPHEN
     Indication: NASOPHARYNGITIS
     Dosage: RECOMMENDED DOSE FOR AGE AND WEIGHT AS NEEDED
     Route: 048
     Dates: start: 201905

REACTIONS (2)
  - Discomfort [Recovered/Resolved]
  - Pruritus [Recovered/Resolved]

NARRATIVE: CASE EVENT DATE: 201905
